FAERS Safety Report 4444428-2 (Version None)
Quarter: 2004Q3

REPORT INFORMATION
  Report Type: 
  Country: None (occurrence: None)
  Receive Date: 20040902
  Receipt Date: 20040816
  Transmission Date: 20050211
  Serious: Yes (Other)
  Sender: FDA-Public Use
  Company Number: USA040362808

PATIENT
  Age: 75 Year
  Sex: Female
  Weight: 53 kg

DRUGS (8)
  1. FORTEO [Suspect]
     Indication: OSTEOPOROSIS
     Dates: start: 20040301
  2. NEURONTIN [Concomitant]
  3. ULTRAM [Concomitant]
  4. CLONAZEPAM [Concomitant]
  5. THEOPHYLLINE [Concomitant]
  6. LEXAPRO [Concomitant]
  7. MAGNESIUM [Concomitant]
  8. MULTI-VITAMIN [Concomitant]

REACTIONS (14)
  - ABDOMINAL DISTENSION [None]
  - ABDOMINAL RIGIDITY [None]
  - BACK PAIN [None]
  - BLADDER CANCER [None]
  - COLD SWEAT [None]
  - FEELING ABNORMAL [None]
  - GROIN PAIN [None]
  - HOT FLUSH [None]
  - HYPERHIDROSIS [None]
  - INJECTION SITE STINGING [None]
  - MUSCLE CRAMP [None]
  - PAIN IN EXTREMITY [None]
  - PHARMACEUTICAL PRODUCT COMPLAINT [None]
  - SOMNOLENCE [None]
